FAERS Safety Report 4894955-9 (Version None)
Quarter: 2006Q1

REPORT INFORMATION
  Report Type: 
  Country: None (occurrence: None)
  Receive Date: 20060130
  Receipt Date: 20050510
  Transmission Date: 20060701
  Serious: No
  Sender: FDA-Public Use
  Company Number: US-BRISTOL-MYERS SQUIBB COMPANY-12962684

PATIENT
  Age: 74 Year
  Sex: Female

DRUGS (9)
  1. GLUCOPHAGE [Suspect]
     Indication: DIABETES MELLITUS
     Route: 048
     Dates: start: 20050426
  2. PREVACID [Interacting]
     Indication: GASTROOESOPHAGEAL REFLUX DISEASE
     Route: 048
     Dates: start: 20000101
  3. GLUCOTROL [Interacting]
     Indication: DIABETES MELLITUS
     Route: 048
     Dates: start: 20050426
  4. LIPITOR [Concomitant]
     Indication: BLOOD CHOLESTEROL INCREASED
     Route: 048
  5. PLAVIX [Concomitant]
     Route: 048
  6. TOPROL-XL [Concomitant]
     Indication: HYPERTENSION
     Route: 048
  7. MONOPRIL [Concomitant]
     Route: 048
  8. DYAZIDE [Concomitant]
     Indication: HYPERTENSION
     Route: 048
  9. ADVAIR DISKUS 100/50 [Concomitant]

REACTIONS (3)
  - DRUG INTERACTION [None]
  - DYSPEPSIA [None]
  - GASTROOESOPHAGEAL REFLUX DISEASE [None]
